FAERS Safety Report 16011927 (Version 5)
Quarter: 2020Q1

REPORT INFORMATION
  Report Type: Report from Study
  Country: CN (occurrence: CN)
  Receive Date: 20190227
  Receipt Date: 20200205
  Transmission Date: 20200409
  Serious: Yes (Hospitalization)
  Sender: FDA-Public Use
  Company Number: CN-ROCHE-2270677

PATIENT
  Age: 51 Year
  Sex: Female
  Weight: 70 kg

DRUGS (32)
  1. CARBOPLATIN. [Suspect]
     Active Substance: CARBOPLATIN
     Indication: OVARIAN CANCER
     Dosage: MOST RECENT DOSE OF 779.27 MG OF CARBOPLATIN ADMINISTERED PRIOR TO SAE ONSET: 18/FEB/2019
     Route: 042
     Dates: start: 20181122
  2. PACLITAXEL. [Suspect]
     Active Substance: PACLITAXEL
     Indication: OVARIAN CANCER
     Dosage: DATE OF MOST RECENT DOSE OF 299.78 MG OF PACLITAXEL PRIOR TO SAE ONSET: 18/FEB/2019
     Route: 042
     Dates: start: 20181122
  3. CIMETIDINE [Concomitant]
     Active Substance: CIMETIDINE
     Route: 065
     Dates: start: 20190125, end: 20190125
  4. DIPHENHYDRAMINE HYDROCHLORIDE. [Concomitant]
     Active Substance: DIPHENHYDRAMINE HYDROCHLORIDE
     Indication: ALLERGY PROPHYLAXIS
     Route: 065
     Dates: start: 20190125, end: 20190125
  5. SODIUM CHLORIDE. [Concomitant]
     Active Substance: SODIUM CHLORIDE
     Indication: NUTRITIONAL SUPPLEMENTATION
     Route: 065
     Dates: start: 20190125, end: 20190127
  6. GLUTATHIONE REDUCED [Concomitant]
     Indication: ASPARTATE AMINOTRANSFERASE INCREASED
     Route: 065
     Dates: start: 20190125, end: 20190127
  7. IODIXANOL. [Concomitant]
     Active Substance: IODIXANOL
     Route: 065
     Dates: start: 20190123, end: 20190123
  8. IRON SUCROSE [Concomitant]
     Active Substance: IRON SUCROSE
     Indication: ANAEMIA
     Route: 065
     Dates: start: 20190214, end: 20190217
  9. TELMISARTAN. [Concomitant]
     Active Substance: TELMISARTAN
     Route: 065
     Dates: start: 2004
  10. ROSUVASTATIN CALCIUM. [Concomitant]
     Active Substance: ROSUVASTATIN CALCIUM
     Indication: HYPERLIPIDAEMIA
     Route: 065
     Dates: start: 201810
  11. DEXAMETHASONE. [Concomitant]
     Active Substance: DEXAMETHASONE
     Indication: ALLERGY PROPHYLAXIS
     Route: 048
     Dates: start: 20190124, end: 20190125
  12. BEVACIZUMAB. [Suspect]
     Active Substance: BEVACIZUMAB
     Indication: OVARIAN CANCER
     Dosage: DATE OF MOST RECENT DOSE OF 1005 MG OF BEVACIZUMAB PRIOR TO SAE ONSET: 18/FEB/2019
     Route: 042
     Dates: start: 20181212
  13. GLUTATHIONE REDUCED [Concomitant]
     Route: 065
     Dates: start: 20190220, end: 20190312
  14. OMEPRAZOLE SODIUM [Concomitant]
     Active Substance: OMEPRAZOLE SODIUM
     Route: 065
     Dates: start: 20190125, end: 20190127
  15. DEXAMETHASONE. [Concomitant]
     Active Substance: DEXAMETHASONE
     Route: 065
     Dates: start: 20190217, end: 20190218
  16. NIFEDIPINE. [Concomitant]
     Active Substance: NIFEDIPINE
     Route: 065
     Dates: start: 2004
  17. GLUCOSE [Concomitant]
     Active Substance: DEXTROSE
     Route: 065
     Dates: start: 20190218, end: 20190220
  18. LACTULOSE. [Concomitant]
     Active Substance: LACTULOSE
     Indication: CONSTIPATION
     Route: 048
     Dates: start: 20190124, end: 20190203
  19. ATEZOLIZUMAB. [Suspect]
     Active Substance: ATEZOLIZUMAB
     Indication: OVARIAN CANCER
     Dosage: DATE OF MOST RECENT DOSE OF BLINDED ATEZOLIZUMAB PRIOR TO SAE ONSET: 18/FEB/2019
     Route: 041
     Dates: start: 20181122
  20. PALONOSETRON HYDROCHLORIDE. [Concomitant]
     Active Substance: PALONOSETRON HYDROCHLORIDE
     Indication: PROPHYLAXIS OF NAUSEA AND VOMITING
     Route: 065
     Dates: start: 20190125, end: 20190127
  21. PALONOSETRON HYDROCHLORIDE. [Concomitant]
     Active Substance: PALONOSETRON HYDROCHLORIDE
     Route: 065
     Dates: start: 20190218, end: 20190220
  22. OMEPRAZOLE SODIUM [Concomitant]
     Active Substance: OMEPRAZOLE SODIUM
     Route: 065
     Dates: start: 20190218, end: 20190220
  23. CIMETIDINE [Concomitant]
     Active Substance: CIMETIDINE
     Route: 065
     Dates: start: 20190218, end: 20190218
  24. GLUTATHIONE REDUCED [Concomitant]
     Route: 065
     Dates: start: 20190219, end: 20190219
  25. PALONOSETRON HYDROCHLORIDE. [Concomitant]
     Active Substance: PALONOSETRON HYDROCHLORIDE
     Route: 065
     Dates: start: 20190124, end: 20190127
  26. DIPHENHYDRAMINE HYDROCHLORIDE. [Concomitant]
     Active Substance: DIPHENHYDRAMINE HYDROCHLORIDE
     Route: 065
     Dates: start: 20190218, end: 20190218
  27. SODIUM CHLORIDE. [Concomitant]
     Active Substance: SODIUM CHLORIDE
     Route: 065
     Dates: start: 20190218, end: 20190220
  28. MULTIPLE ELECTROLYTES [Concomitant]
     Route: 065
     Dates: start: 20190218, end: 20190220
  29. GLUCOSE [Concomitant]
     Active Substance: DEXTROSE
     Route: 065
     Dates: start: 20190125, end: 20190127
  30. LACTULOSE. [Concomitant]
     Active Substance: LACTULOSE
     Route: 065
     Dates: start: 20190214, end: 20190218
  31. POTASSIUM CHLORIDE. [Concomitant]
     Active Substance: POTASSIUM CHLORIDE
     Indication: HYPOKALAEMIA
     Route: 065
     Dates: start: 20190127, end: 20190208
  32. GLUTATHIONE REDUCED [Concomitant]
     Route: 065
     Dates: start: 20190217, end: 20190217

REACTIONS (1)
  - White blood cell count decreased [Recovered/Resolved]

NARRATIVE: CASE EVENT DATE: 20190220
